FAERS Safety Report 23705721 (Version 1)
Quarter: 2024Q2

REPORT INFORMATION
  Report Type: Spontaneous
  Country: US (occurrence: US)
  Receive Date: 20240404
  Receipt Date: 20240404
  Transmission Date: 20240716
  Serious: No
  Sender: FDA-Public Use
  Company Number: US-HBP-2024US030606

PATIENT
  Age: 50 Year
  Sex: Male

DRUGS (1)
  1. VALCHLOR [Suspect]
     Active Substance: MECHLORETHAMINE
     Indication: Product used for unknown indication
     Dosage: THIN FILM TO AFFECTED SKIN, QD
     Route: 061

REACTIONS (3)
  - Skin lesion [Unknown]
  - Sleep disorder [Unknown]
  - Pruritus [Unknown]

NARRATIVE: CASE EVENT DATE: 20231001
